FAERS Safety Report 26143844 (Version 1)
Quarter: 2025Q4

REPORT INFORMATION
  Report Type: Spontaneous
  Country: EU (occurrence: EU)
  Receive Date: 20251211
  Receipt Date: 20251211
  Transmission Date: 20260118
  Serious: Yes (Hospitalization)
  Sender: TEVA
  Company Number: None

PATIENT
  Age: 45 Year
  Sex: Female
  Weight: 80 kg

DRUGS (2)
  1. DIAZEPAM [Suspect]
     Active Substance: DIAZEPAM
     Indication: Poisoning deliberate
     Dosage: TIME INTERVAL: TOTAL: NP
     Route: 048
     Dates: start: 20251026, end: 20251026
  2. CYAMEMAZINE [Suspect]
     Active Substance: CYAMEMAZINE
     Indication: Poisoning deliberate
     Dosage: TIME INTERVAL: TOTAL: 25 MG X 30 TABLETS, SINGLE DOSE. FILM-COATED SCORED TABLET
     Route: 048
     Dates: start: 20251026, end: 20251026

REACTIONS (2)
  - Coma [Recovering/Resolving]
  - Poisoning deliberate [Recovered/Resolved]

NARRATIVE: CASE EVENT DATE: 20251026
